FAERS Safety Report 7476152-6 (Version None)
Quarter: 2011Q2

REPORT INFORMATION
  Report Type: 
  Country: None (occurrence: None)
  Receive Date: 20110512
  Receipt Date: 20110505
  Transmission Date: 20111010
  Serious: Yes (Hospitalization)
  Sender: FDA-Public Use
  Company Number: US-MERCK-1105USA01184

PATIENT
  Age: 52 Year
  Sex: Female

DRUGS (5)
  1. SYNTHROID [Concomitant]
     Route: 065
  2. METFORMIN [Concomitant]
     Route: 065
  3. SINGULAIR [Concomitant]
     Route: 065
  4. ZOCOR [Suspect]
     Indication: BLOOD CHOLESTEROL INCREASED
     Route: 048
     Dates: start: 19910101, end: 20090101
  5. SIMVASTATIN [Suspect]
     Indication: BLOOD CHOLESTEROL INCREASED
     Route: 065

REACTIONS (3)
  - OEDEMA PERIPHERAL [None]
  - URTICARIA [None]
  - DYSPNOEA [None]
